FAERS Safety Report 21482682 (Version 1)
Quarter: 2022Q4

REPORT INFORMATION
  Report Type: Spontaneous
  Country: UY (occurrence: None)
  Receive Date: 20221020
  Receipt Date: 20221020
  Transmission Date: 20230113
  Serious: Yes (Other)
  Sender: FDA-Public Use
  Company Number: UY-ROCHE-3200724

PATIENT

DRUGS (2)
  1. EMICIZUMAB [Suspect]
     Active Substance: EMICIZUMAB
     Indication: Factor VIII deficiency
     Dosage: 4 DOSIS; LOAD DOSE
     Route: 058
  2. EMICIZUMAB [Suspect]
     Active Substance: EMICIZUMAB
     Route: 058

REACTIONS (12)
  - Spontaneous haemorrhage [Unknown]
  - Traumatic haemorrhage [Unknown]
  - Haemarthrosis [Unknown]
  - Muscle haemorrhage [Unknown]
  - Procedural haemorrhage [Unknown]
  - Upper respiratory tract infection [Unknown]
  - Lower respiratory tract infection [Unknown]
  - Puncture site reaction [Unknown]
  - Headache [Unknown]
  - Photophobia [Unknown]
  - Gastrointestinal disorder [Unknown]
  - Erythema [Unknown]
